FAERS Safety Report 7463101-X (Version None)
Quarter: 2011Q2

REPORT INFORMATION
  Report Type: 
  Country: None (occurrence: None)
  Receive Date: 20110506
  Receipt Date: 20110429
  Transmission Date: 20111010
  Serious: Yes (Other)
  Sender: FDA-Public Use
  Company Number: FR-B.I. PHARMACEUTICALS,INC./RIDGEFIELD-2011-DE-02801GD

PATIENT

DRUGS (1)
  1. PRADAXA [Suspect]
     Indication: THROMBOSIS PROPHYLAXIS
     Dosage: 2X110MG OR 2X75MG WITH THE FIRST DOSE HALVED AND GIVEN 1-4H AFTER SURGERY
     Route: 048

REACTIONS (1)
  - DEEP VEIN THROMBOSIS [None]
